FAERS Safety Report 7933395-2 (Version None)
Quarter: 2011Q4

REPORT INFORMATION
  Report Type: 
  Country: None (occurrence: None)
  Receive Date: 20111122
  Receipt Date: 20111122
  Transmission Date: 20120403
  Serious: Yes (Other)
  Sender: FDA-Public Use
  Company Number: None

PATIENT
  Age: 26 Year
  Sex: Male
  Weight: 77.11 kg

DRUGS (1)
  1. PROSCAR [Suspect]
     Indication: ALOPECIA
     Dosage: 1/4 OF PILL
     Route: 048
     Dates: start: 20000524, end: 20060726

REACTIONS (3)
  - SEMEN VOLUME DECREASED [None]
  - GYNAECOMASTIA [None]
  - LIBIDO DECREASED [None]
